FAERS Safety Report 9504044 (Version 1)
Quarter: 2013Q3

REPORT INFORMATION
  Report Type: Spontaneous
  Country: US (occurrence: None)
  Receive Date: 20130905
  Receipt Date: 20130905
  Transmission Date: 20140515
  Serious: Yes (Death)
  Sender: FDA-Public Use
  Company Number: None

PATIENT
  Age: 56 Year
  Sex: Male
  Weight: 85 kg

DRUGS (1)
  1. HERBAL MALE ENHANCEMENT [Suspect]

REACTIONS (3)
  - Brain injury [None]
  - Pulse absent [None]
  - Urinary incontinence [None]
